FAERS Safety Report 7634644-0 (Version None)
Quarter: 2011Q3

REPORT INFORMATION
  Report Type: 
  Country: None (occurrence: None)
  Receive Date: 20110725
  Receipt Date: 20110718
  Transmission Date: 20111222
  Serious: Yes (Other)
  Sender: FDA-Public Use
  Company Number: US-RB-030537-11

PATIENT
  Age: 56 Year
  Sex: Male

DRUGS (2)
  1. SUBOXONE [Suspect]
     Indication: DRUG DEPENDENCE
     Dosage: SUBLINGUAL FILM
     Route: 060
     Dates: start: 20110601
  2. ALCOHOL [Suspect]
     Dosage: EXCESSIVE
     Route: 048

REACTIONS (4)
  - MEMORY IMPAIRMENT [None]
  - HEAD INJURY [None]
  - LOSS OF CONSCIOUSNESS [None]
  - CONCUSSION [None]
